FAERS Safety Report 16415232 (Version 2)
Quarter: 2019Q2

REPORT INFORMATION
  Report Type: Spontaneous
  Country: US (occurrence: US)
  Receive Date: 20190611
  Receipt Date: 20190617
  Transmission Date: 20190711
  Serious: No
  Sender: FDA-Public Use
  Company Number: US-PFIZER INC-2019247144

PATIENT
  Age: 71 Year

DRUGS (1)
  1. LYRICA [Suspect]
     Active Substance: PREGABALIN
     Dosage: 100 MG, (EVERY MORNING) 150 MG, (EVERY BEDTIME)
     Route: 048

REACTIONS (1)
  - Withdrawal syndrome [Unknown]
